FAERS Safety Report 7886902-2 (Version None)
Quarter: 2011Q4

REPORT INFORMATION
  Report Type: 
  Country: None (occurrence: None)
  Receive Date: 20111102
  Receipt Date: 20110712
  Transmission Date: 20120403
  Serious: No
  Sender: FDA-Public Use
  Company Number: US-AMGEN-USASP2011029651

PATIENT
  Age: 39 Year
  Sex: Female

DRUGS (1)
  1. ENBREL [Suspect]
     Indication: RHEUMATOID ARTHRITIS
     Dosage: 50 MG, QWK
     Route: 058
     Dates: start: 20110517, end: 20110701

REACTIONS (8)
  - INJECTION SITE ERYTHEMA [None]
  - HEADACHE [None]
  - INJECTION SITE PRURITUS [None]
  - HYPOAESTHESIA [None]
  - BEDRIDDEN [None]
  - INJECTION SITE PAIN [None]
  - INJECTION SITE VESICLES [None]
  - PARAESTHESIA [None]
